FAERS Safety Report 16449625 (Version 1)
Quarter: 2019Q2

REPORT INFORMATION
  Report Type: Spontaneous
  Country: US (occurrence: US)
  Receive Date: 20190509
  Receipt Date: 20190509
  Transmission Date: 20190711
  Serious: Yes (Hospitalization)
  Sender: FDA-Public Use
  Company Number: None

PATIENT
  Age: 49 Year
  Sex: Male
  Weight: 69.7 kg

DRUGS (4)
  1. ONDANSETRON [Concomitant]
     Active Substance: ONDANSETRON
  2. NIVOLUMAB 240 MG [Suspect]
     Active Substance: NIVOLUMAB
     Indication: GASTROINTESTINAL STROMAL TUMOUR
     Dates: start: 20180926, end: 20180926
  3. IPILIMUMAB 1 MG/KG [Suspect]
     Active Substance: IPILIMUMAB
     Dosage: 1 MG/ KG EVEREY 6 WEEKS
     Route: 042
     Dates: start: 20180926, end: 20180926
  4. APIXIBAN [Concomitant]
     Active Substance: APIXABAN

REACTIONS (14)
  - Dehydration [None]
  - Abnormal loss of weight [None]
  - Constipation [None]
  - Disease progression [None]
  - Biliary dilatation [None]
  - Gait inability [None]
  - Hypophagia [None]
  - Fall [None]
  - Blood alkaline phosphatase increased [None]
  - Aspartate aminotransferase increased [None]
  - Decreased activity [None]
  - Alanine aminotransferase increased [None]
  - Asthenia [None]
  - Blood bilirubin increased [None]

NARRATIVE: CASE EVENT DATE: 20181024
